FAERS Safety Report 10267442 (Version 6)
Quarter: 2014Q3

REPORT INFORMATION
  Report Type: Spontaneous
  Country: ES (occurrence: ES)
  Receive Date: 20140630
  Receipt Date: 20140925
  Transmission Date: 20150326
  Serious: Yes (Death, Hospitalization, Other)
  Sender: FDA-Public Use
  Company Number: ES-AMGEN-ESPSP2014048295

PATIENT
  Age: 84 Year
  Sex: Female

DRUGS (4)
  1. EUTIROX [Concomitant]
     Active Substance: LEVOTHYROXINE SODIUM
     Indication: THYROID DISORDER
  2. NPLATE [Suspect]
     Active Substance: ROMIPLOSTIM
     Indication: IMMUNE THROMBOCYTOPENIC PURPURA
     Dosage: 250 MUG, Q15D
     Route: 058
     Dates: start: 200911, end: 20140512
  3. SUTRIL                             /01036501/ [Concomitant]
     Indication: HYPERTENSION
  4. LEVOTHROID [Concomitant]
     Active Substance: LEVOTHYROXINE SODIUM
     Indication: HYPOTHYROIDISM
     Dosage: UNK

REACTIONS (10)
  - Bone pain [Unknown]
  - Cardiac failure [Unknown]
  - Oedema peripheral [Unknown]
  - Respiratory tract infection [Unknown]
  - Platelet count decreased [Unknown]
  - Visual acuity reduced [Unknown]
  - Infection [Fatal]
  - Urinary tract infection [Unknown]
  - Haemolytic anaemia [Recovered/Resolved]
  - Diabetic complication [Unknown]

NARRATIVE: CASE EVENT DATE: 2012
